FAERS Safety Report 25035039 (Version 1)
Quarter: 2025Q1

REPORT INFORMATION
  Report Type: Spontaneous
  Country: US (occurrence: US)
  Receive Date: 20250304
  Receipt Date: 20250304
  Transmission Date: 20250408
  Serious: Yes (Other)
  Sender: CHEPLAPHARM
  Company Number: US-CHEPLA-2025002761

PATIENT
  Sex: Male

DRUGS (13)
  1. BUDESONIDE [Suspect]
     Active Substance: BUDESONIDE
  2. TEZEPELUMAB [Suspect]
     Active Substance: TEZEPELUMAB
  3. BENZONATATE [Concomitant]
     Active Substance: BENZONATATE
  4. AZELASTINE [Concomitant]
     Active Substance: AZELASTINE
  5. BREYNA [Concomitant]
     Active Substance: BUDESONIDE\FORMOTEROL FUMARATE
  6. Cetirzine [Concomitant]
  7. DARIDOREXANT [Concomitant]
     Active Substance: DARIDOREXANT
  8. FEXOFENADINE [Concomitant]
     Active Substance: FEXOFENADINE HYDROCHLORIDE
  9. FLUTICASONE [Concomitant]
     Active Substance: FLUTICASONE
  10. MIRTAZAPINE [Concomitant]
     Active Substance: MIRTAZAPINE
  11. LEVALBUTEROL [Concomitant]
     Active Substance: LEVALBUTEROL
  12. SERTRALINE [Concomitant]
     Active Substance: SERTRALINE HYDROCHLORIDE
  13. Tamusolin [Concomitant]

REACTIONS (2)
  - Tracheomalacia [Unknown]
  - Bronchomalacia [Unknown]
